FAERS Safety Report 17922290 (Version 1)
Quarter: 2020Q2

REPORT INFORMATION
  Report Type: Spontaneous
  Country: US (occurrence: US)
  Receive Date: 20200620
  Receipt Date: 20200620
  Transmission Date: 20200714
  Serious: Yes (Other)
  Sender: FDA-Public Use
  Company Number: None

PATIENT
  Age: 51 Year
  Sex: Female
  Weight: 96.75 kg

DRUGS (3)
  1. PRENATAL VITAMINS [Concomitant]
     Active Substance: VITAMINS
  2. NP THYROID [Suspect]
     Active Substance: LEVOTHYROXINE\LIOTHYRONINE
     Indication: HYPOTHYROIDISM
     Route: 048
     Dates: start: 20200313, end: 20200403
  3. ADVIL [Concomitant]
     Active Substance: IBUPROFEN

REACTIONS (6)
  - Migraine [None]
  - Muscular weakness [None]
  - Recalled product [None]
  - Vision blurred [None]
  - Hypersomnia [None]
  - Hyperhidrosis [None]

NARRATIVE: CASE EVENT DATE: 20200504
